FAERS Safety Report 8359265-6 (Version None)
Quarter: 2012Q2

REPORT INFORMATION
  Report Type: 
  Country: None (occurrence: None)
  Receive Date: 20120515
  Receipt Date: 20120509
  Transmission Date: 20120825
  Serious: Yes (Other)
  Sender: FDA-Public Use
  Company Number: US-AMGEN-USASP2012010065

PATIENT
  Age: 67 Year
  Sex: Female

DRUGS (6)
  1. PROLIA [Suspect]
     Indication: OSTEOPOROSIS POSTMENOPAUSAL
     Dates: start: 20120206
  2. MULTIVITAMIN                       /00097801/ [Concomitant]
  3. CALCIUM [Concomitant]
  4. VITAMIN D [Concomitant]
     Indication: OSTEOPOROSIS POSTMENOPAUSAL
     Dosage: UNK
  5. ZYRTEC [Concomitant]
     Indication: HYPERSENSITIVITY
     Dosage: UNK UNK, PRN
  6. CALCIUM [Concomitant]
     Indication: OSTEOPOROSIS POSTMENOPAUSAL
     Dosage: UNK

REACTIONS (15)
  - BONE PAIN [None]
  - ABDOMINAL PAIN UPPER [None]
  - PHOTOPSIA [None]
  - DIZZINESS [None]
  - ASTHENIA [None]
  - NAUSEA [None]
  - FLUSHING [None]
  - INSOMNIA [None]
  - TINNITUS [None]
  - MUSCULOSKELETAL PAIN [None]
  - VERTIGO [None]
  - PAIN IN JAW [None]
  - INFLUENZA [None]
  - SENSATION OF HEAVINESS [None]
  - NYSTAGMUS [None]
